FAERS Safety Report 8190420-4 (Version None)
Quarter: 2012Q1

REPORT INFORMATION
  Report Type: 
  Country: None (occurrence: None)
  Receive Date: 20120221
  Receipt Date: 20111220
  Transmission Date: 20120608
  Serious: No
  Sender: FDA-Public Use
  Company Number: 1000026454

PATIENT
  Age: 59 Year
  Sex: Female

DRUGS (6)
  1. TRILIPIX (CHOLINE FENOFIBRATE) (CHOLINE FENOFIBRATE) [Concomitant]
  2. VIIBRYD [Suspect]
     Indication: DEPRESSION
     Dosage: 10 MG (10 MG, 1 IN 1 D), ORAL
     Route: 048
     Dates: start: 20111202, end: 20111208
  3. ASPIRIN [Concomitant]
  4. ACTOS [Concomitant]
  5. LISINOPRIL [Concomitant]
  6. ULTRAM (TRAMADOL HYDROCHLORIDE0 (TRAMADOL HYDROCHLORIDE) [Concomitant]

REACTIONS (3)
  - INCREASED APPETITE [None]
  - ANGER [None]
  - CRYING [None]
